FAERS Safety Report 23093695 (Version 4)
Quarter: 2023Q4

REPORT INFORMATION
  Report Type: Spontaneous
  Country: US (occurrence: US)
  Receive Date: 20231023
  Receipt Date: 20231124
  Transmission Date: 20240109
  Serious: Yes (Other)
  Sender: FDA-Public Use
  Company Number: US-TOLMAR, INC.-23US044054

PATIENT
  Age: 62 Year
  Sex: Male

DRUGS (1)
  1. JATENZO [Suspect]
     Active Substance: TESTOSTERONE UNDECANOATE
     Indication: Hypogonadism
     Dosage: 396 MILLIGRAM, QD

REACTIONS (3)
  - Chronic kidney disease [Unknown]
  - Blood testosterone abnormal [Not Recovered/Not Resolved]
  - Drug ineffective [Unknown]
